FAERS Safety Report 15684241 (Version 1)
Quarter: 2018Q4

REPORT INFORMATION
  Report Type: Spontaneous
  Country: FR (occurrence: FR)
  Receive Date: 20181204
  Receipt Date: 20181204
  Transmission Date: 20190205
  Serious: Yes (Other)
  Sender: FDA-Public Use
  Company Number: FR-CELLTRION INC.-2018FR024093

PATIENT

DRUGS (2)
  1. AZATHIOPRINE. [Suspect]
     Active Substance: AZATHIOPRINE
     Indication: CROHN^S DISEASE
     Dosage: 125 MG DAILY
     Route: 065
  2. INFLIXIMAB (UNKNOWN) [Suspect]
     Active Substance: INFLIXIMAB
     Indication: CROHN^S DISEASE
     Dosage: 5 MG/KG 8 WEEKS 1 {TRIMESTER} EXCEPT DURING THE THIRD TRIMESTER
     Route: 065

REACTIONS (5)
  - Maternal exposure during pregnancy [Unknown]
  - Immunodeficiency [Unknown]
  - Live birth [Unknown]
  - Toxoplasmosis [Unknown]
  - Escherichia infection [Unknown]
